FAERS Safety Report 5944529-3 (Version None)
Quarter: 2008Q4

REPORT INFORMATION
  Report Type: 
  Country: None (occurrence: None)
  Receive Date: 20081107
  Receipt Date: 20081104
  Transmission Date: 20090506
  Serious: Yes (Other)
  Sender: FDA-Public Use
  Company Number: FR-BRISTOL-MYERS SQUIBB COMPANY-14396915

PATIENT
  Age: 46 Year
  Sex: Female

DRUGS (2)
  1. SUSTIVA [Suspect]
     Indication: ANTIRETROVIRAL THERAPY
     Route: 048
     Dates: start: 20080409, end: 20080509
  2. TRUVADA [Suspect]
     Indication: ANTIRETROVIRAL THERAPY
     Dosage: 1DF-EMTRICITABINE 200MG/TENOFOVIR DISOPROXIL 245MG;TABS. TAKEN 1 TAB PER DAY FROM 09MAY08
     Route: 048
     Dates: start: 20080409

REACTIONS (4)
  - ERYTHEMA [None]
  - EYELID OEDEMA [None]
  - INCORRECT DOSE ADMINISTERED [None]
  - PRURITUS GENERALISED [None]
